FAERS Safety Report 8472983 (Version 2)
Quarter: 2013Q3

REPORT INFORMATION
  Report Type: Spontaneous
  Country: ES (occurrence: ES)
  Receive Date: 20120322
  Receipt Date: 20130709
  Transmission Date: 20140515
  Serious: Yes (Other)
  Sender: FDA-Public Use
  Company Number: CHPA2012ES004967

PATIENT
  Sex: Female

DRUGS (1)
  1. OTRIVIN [Suspect]
     Indication: NASAL CONGESTION
     Dosage: ONE SPRAY IN EACH NOSTRIL 2-3 TIMES DAILY
     Route: 045

REACTIONS (2)
  - Drug dependence [Not Recovered/Not Resolved]
  - Application site pain [Not Recovered/Not Resolved]
